FAERS Safety Report 24421728 (Version 1)
Quarter: 2024Q4

REPORT INFORMATION
  Report Type: Spontaneous
  Country: PL (occurrence: PL)
  Receive Date: 20241010
  Receipt Date: 20241010
  Transmission Date: 20250114
  Serious: Yes (Hospitalization)
  Sender: AUROBINDO
  Company Number: PL-URPL-1-1917-2020

PATIENT

DRUGS (6)
  1. ZOLPIDEM [Suspect]
     Active Substance: ZOLPIDEM TARTRATE
     Indication: Toxicity to various agents
     Dosage: UNK
     Route: 048
  2. ZOLPIDEM [Suspect]
     Active Substance: ZOLPIDEM TARTRATE
     Indication: Toxicity to various agents
  3. MIANSERIN [Suspect]
     Active Substance: MIANSERIN
     Indication: Toxicity to various agents
     Dosage: UNK
     Route: 048
  4. MIANSERIN [Suspect]
     Active Substance: MIANSERIN
     Indication: Toxicity to various agents
  5. CLONAZEPAM [Suspect]
     Active Substance: CLONAZEPAM
     Indication: Toxicity to various agents
     Dosage: UNK
     Route: 048
  6. CLONAZEPAM [Suspect]
     Active Substance: CLONAZEPAM
     Indication: Toxicity to various agents

REACTIONS (2)
  - Psychomotor retardation [Unknown]
  - Somnolence [Unknown]

NARRATIVE: CASE EVENT DATE: 20200723
